FAERS Safety Report 9393355 (Version 1)
Quarter: 2013Q3

REPORT INFORMATION
  Report Type: Report from Study
  Country: PL (occurrence: PL)
  Receive Date: 20130710
  Receipt Date: 20130710
  Transmission Date: 20140515
  Serious: Yes (Other)
  Sender: FDA-Public Use
  Company Number: PL-ROCHE-1239771

PATIENT
  Age: 41 Year
  Sex: Female
  Weight: 54 kg

DRUGS (5)
  1. VEMURAFENIB [Suspect]
     Indication: MALIGNANT MELANOMA
     Dosage: DATE OF LAST DOSE PRIOR TO SAE WAS 12/JAN/2012
     Route: 048
     Dates: start: 20120103
  2. VEMURAFENIB [Suspect]
     Dosage: DATE OF LAST DOSE PRIOR TO SAE WAS 17/JUN/2012
     Route: 048
     Dates: start: 20120121
  3. DEXAMETHASON [Concomitant]
     Dosage: 1/DROP
     Route: 065
     Dates: start: 20130528
  4. YELLOX [Concomitant]
     Dosage: 2/DROP
     Route: 065
     Dates: start: 20130528
  5. TROPICAMIDE [Concomitant]
     Dosage: 2/DROP
     Route: 065
     Dates: start: 20130528

REACTIONS (1)
  - Melanocytic naevus [Recovered/Resolved]
